FAERS Safety Report 8347569-2 (Version None)
Quarter: 2012Q2

REPORT INFORMATION
  Report Type: 
  Country: None (occurrence: None)
  Receive Date: 20120509
  Receipt Date: 20120504
  Transmission Date: 20120825
  Serious: Yes (Other)
  Sender: FDA-Public Use
  Company Number: US-BAYER-2012-044416

PATIENT
  Age: 79 Year
  Sex: Female
  Weight: 68.027 kg

DRUGS (1)
  1. ASPIRIN [Suspect]
     Indication: ARTHRITIS
     Dosage: 1 U, ONCE
     Route: 048
     Dates: start: 20120503, end: 20120503

REACTIONS (2)
  - OROPHARYNGEAL DISCOMFORT [None]
  - THROAT IRRITATION [None]
